FAERS Safety Report 4548501-X (Version None)
Quarter: 2005Q1

REPORT INFORMATION
  Report Type: 
  Country: None (occurrence: None)
  Receive Date: 20050110
  Receipt Date: 20041213
  Transmission Date: 20050727
  Serious: Yes (Disabling)
  Sender: FDA-Public Use
  Company Number: JP-GLAXOSMITHKLINE-B0362037A

PATIENT
  Age: 60 Year
  Sex: Male

DRUGS (1)
  1. ZOVIRAX [Suspect]
     Indication: HERPES ZOSTER
     Dosage: 400MG FIVE TIMES PER DAY
     Route: 048
     Dates: start: 20041208, end: 20041212

REACTIONS (4)
  - ELEVATED MOOD [None]
  - FEELING DRUNK [None]
  - PSYCHIATRIC SYMPTOM [None]
  - SPEECH DISORDER [None]
